FAERS Safety Report 6071578-X (Version None)
Quarter: 2009Q1

REPORT INFORMATION
  Report Type: 
  Country: None (occurrence: None)
  Receive Date: 20090205
  Receipt Date: 20090205
  Transmission Date: 20090719
  Serious: Yes (Life-Threatening)
  Sender: FDA-Public Use
  Company Number: None

PATIENT
  Age: 65 Year
  Sex: Male
  Weight: 74 kg

DRUGS (1)
  1. PROTAMINE SULFATE [Suspect]
     Indication: SURGERY
     Dosage: 30 MG ONCE IV
     Route: 042
     Dates: start: 20090116, end: 20090116

REACTIONS (3)
  - ANAPHYLACTIC REACTION [None]
  - CARDIAC ARREST [None]
  - HYPOTENSION [None]
